FAERS Safety Report 16379929 (Version 1)
Quarter: 2019Q2

REPORT INFORMATION
  Report Type: Report from Study
  Country: US (occurrence: US)
  Receive Date: 20190531
  Receipt Date: 20190531
  Transmission Date: 20190711
  Serious: Yes (Hospitalization)
  Sender: FDA-Public Use
  Company Number: US-SEATTLE GENETICS-2019SGN01754

PATIENT
  Age: 12 Year
  Sex: Female
  Weight: 38.1 kg

DRUGS (6)
  1. ETOPOSIDE. [Suspect]
     Active Substance: ETOPOSIDE
     Indication: HODGKIN^S DISEASE
     Dosage: 474 MG, TOTAL
     Route: 042
     Dates: start: 20190410, end: 20190412
  2. PREDNISONE. [Suspect]
     Active Substance: PREDNISONE
     Indication: HODGKIN^S DISEASE
     Dosage: 350 MG, TOTAL
     Route: 048
     Dates: start: 20190410, end: 20190416
  3. BRENTUXIMAB VEDOTIN [Suspect]
     Active Substance: BRENTUXIMAB VEDOTIN
     Indication: HODGKIN^S DISEASE
     Dosage: 69 MG, TOTAL
     Route: 042
     Dates: start: 20190410, end: 20190410
  4. CYCLOPHOSPHAMIDE. [Suspect]
     Active Substance: CYCLOPHOSPHAMIDE
     Indication: HODGKIN^S DISEASE
     Dosage: 1512 MG, TOTAL
     Route: 042
     Dates: start: 20190410, end: 20190411
  5. DOXORUBICIN [Suspect]
     Active Substance: DOXORUBICIN
     Indication: HODGKIN^S DISEASE
     Dosage: 64 MG, TOTAL
     Route: 042
     Dates: start: 20190410, end: 20190411
  6. VINCRISTINE [Suspect]
     Active Substance: VINCRISTINE
     Indication: HODGKIN^S DISEASE
     Dosage: 1.8 MG, TOTAL
     Route: 042
     Dates: start: 20190417, end: 20190417

REACTIONS (2)
  - Lymphocyte count decreased [Recovered/Resolved]
  - White blood cell count decreased [Recovered/Resolved]

NARRATIVE: CASE EVENT DATE: 20190419
